FAERS Safety Report 18764367 (Version 4)
Quarter: 2023Q1

REPORT INFORMATION
  Report Type: Spontaneous
  Country: US (occurrence: US)
  Receive Date: 20210120
  Receipt Date: 20230130
  Transmission Date: 20230417
  Serious: No
  Sender: FDA-Public Use
  Company Number: US-PFIZER INC-2020313130

PATIENT
  Age: 66 Year
  Sex: Female

DRUGS (4)
  1. IBRANCE [Suspect]
     Active Substance: PALBOCICLIB
     Indication: Breast cancer female
     Dosage: UNK
     Dates: start: 20200228
  2. IBRANCE [Suspect]
     Active Substance: PALBOCICLIB
     Dosage: 1 DAILY FOR 21 DAYS
     Route: 048
     Dates: start: 20200730
  3. IBRANCE [Suspect]
     Active Substance: PALBOCICLIB
     Dosage: 1 DAILY FOR 21 DAYS
     Route: 048
     Dates: start: 20200730
  4. IBRANCE [Suspect]
     Active Substance: PALBOCICLIB
     Dosage: 125 MG, DAILY
     Route: 048

REACTIONS (3)
  - Peripheral swelling [Unknown]
  - Sinusitis [Unknown]
  - Product dose omission issue [Unknown]

NARRATIVE: CASE EVENT DATE: 20220101
